FAERS Safety Report 25547987 (Version 1)
Quarter: 2025Q3

REPORT INFORMATION
  Report Type: Spontaneous
  Country: EU (occurrence: EU)
  Receive Date: 20250714
  Receipt Date: 20250714
  Transmission Date: 20251021
  Serious: Yes (Hospitalization, Other)
  Sender: AUROBINDO
  Company Number: EU-AFSSAPS-CN2025000686

PATIENT
  Age: 54 Year
  Sex: Male

DRUGS (10)
  1. GABAPENTIN [Suspect]
     Active Substance: GABAPENTIN
     Indication: Neuralgia
     Dosage: 300 MILLIGRAM, ONCE A DAY
     Route: 048
     Dates: start: 20250607, end: 20250610
  2. VENLAFAXINE [Suspect]
     Active Substance: VENLAFAXINE HYDROCHLORIDE
     Indication: Depression
     Dosage: 75 MILLIGRAM, ONCE A DAY
     Route: 048
     Dates: end: 20250606
  3. VENLAFAXINE [Suspect]
     Active Substance: VENLAFAXINE HYDROCHLORIDE
     Dosage: 112.5 MILLIGRAM, ONCE A DAY
     Route: 048
     Dates: start: 20250607
  4. ACAMPROSATE CALCIUM [Concomitant]
     Active Substance: ACAMPROSATE CALCIUM
     Indication: Alcohol use disorder
     Dosage: 1998 MILLIGRAM, ONCE A DAY
     Route: 048
     Dates: start: 20250606
  5. DIAZEPAM [Concomitant]
     Active Substance: DIAZEPAM
     Indication: Prophylaxis against alcoholic withdrawal syndrome
     Dosage: 60 MILLIGRAM, ONCE A DAY
     Route: 048
     Dates: start: 20250606
  6. NIACINAMIDE [Concomitant]
     Active Substance: NIACINAMIDE
     Indication: Tobacco withdrawal symptoms
     Dosage: 1000 MILLIGRAM, ONCE A DAY
     Route: 048
     Dates: start: 20250606
  7. CYANOCOBALAMIN\PYRIDOXINE HYDROCHLORIDE\THIAMINE [Concomitant]
     Active Substance: CYANOCOBALAMIN\PYRIDOXINE HYDROCHLORIDE\THIAMINE
     Indication: Prophylaxis against alcoholic withdrawal syndrome
     Dosage: 2 DOSAGE FORM, ONCE A DAY
     Route: 048
     Dates: start: 20250606
  8. MELATONIN [Concomitant]
     Active Substance: MELATONIN
     Indication: Sleep disorder therapy
     Dosage: 2 MILLIGRAM, ONCE A DAY
     Route: 048
     Dates: start: 20250606
  9. OXYCONTIN [Concomitant]
     Active Substance: OXYCODONE HYDROCHLORIDE
     Indication: Lumbar spinal stenosis
     Dosage: 40 MILLIGRAM, ONCE A DAY
     Route: 048
  10. OXYCODONE HYDROCHLORIDE [Concomitant]
     Active Substance: OXYCODONE HYDROCHLORIDE
     Indication: Lumbar spinal stenosis
     Dosage: 20 MILLIGRAM, ONCE A DAY
     Route: 048

REACTIONS (1)
  - Hepatic cytolysis [Recovering/Resolving]

NARRATIVE: CASE EVENT DATE: 20250610
